FAERS Safety Report 6253774-1 (Version None)
Quarter: 2009Q2

REPORT INFORMATION
  Report Type: 
  Country: None (occurrence: None)
  Receive Date: 20090630
  Receipt Date: 20090619
  Transmission Date: 20091009
  Serious: Yes (Hospitalization)
  Sender: FDA-Public Use
  Company Number: GXKR2009NL07134

PATIENT
  Age: 43 Year
  Sex: Male

DRUGS (1)
  1. METOPROLOL SUCCINATE [Suspect]
     Indication: MIGRAINE
     Dosage: 1 DF, QD, ORAL
     Route: 048
     Dates: start: 20090415

REACTIONS (2)
  - CEREBROVASCULAR ACCIDENT [None]
  - MIGRAINE [None]
